FAERS Safety Report 18579310 (Version 1)
Quarter: 2020Q4

REPORT INFORMATION
  Report Type: Spontaneous
  Country: BR (occurrence: BR)
  Receive Date: 20201204
  Receipt Date: 20201204
  Transmission Date: 20210114
  Serious: Yes (Other)
  Sender: FDA-Public Use
  Company Number: NVSC2020BR292970

PATIENT
  Age: 70 Year
  Sex: Female
  Weight: 62 kg

DRUGS (1)
  1. COSENTYX [Suspect]
     Active Substance: SECUKINUMAB
     Indication: PSORIATIC ARTHROPATHY
     Dosage: UNK (2 AMPOULES)
     Route: 058
     Dates: start: 20200916, end: 20200916

REACTIONS (5)
  - Haematoma [Recovering/Resolving]
  - Intra-abdominal haematoma [Recovering/Resolving]
  - Oedema peripheral [Recovering/Resolving]
  - Skin discolouration [Recovering/Resolving]
  - Localised oedema [Recovering/Resolving]

NARRATIVE: CASE EVENT DATE: 20200916
